FAERS Safety Report 10524571 (Version 1)
Quarter: 2014Q4

REPORT INFORMATION
  Report Type: Spontaneous
  Country: US (occurrence: None)
  Receive Date: 20141015
  Receipt Date: 20141015
  Transmission Date: 20150528
  Serious: Yes (Hospitalization)
  Sender: FDA-Public Use
  Company Number: None

PATIENT
  Age: 56 Year
  Sex: Female
  Weight: 73.3 kg

DRUGS (36)
  1. ASA [Concomitant]
     Active Substance: ASPIRIN
  2. BETAPACE [Concomitant]
     Active Substance: SOTALOL HYDROCHLORIDE
  3. DIAZEPAM. [Concomitant]
     Active Substance: DIAZEPAM
  4. LORTAB [Concomitant]
     Active Substance: ACETAMINOPHEN\HYDROCODONE BITARTRATE
  5. TIZANIDINE (TIZANIDINE) [Concomitant]
     Active Substance: TIZANIDINE
  6. ALEMTUZUMAB [Suspect]
     Active Substance: ALEMTUZUMAB
     Indication: MULTIPLE SCLEROSIS
     Dosage: 12MG IV QD X 3 DAYS
     Route: 042
     Dates: start: 20140826, end: 20140828
  7. AMARYL [Concomitant]
     Active Substance: GLIMEPIRIDE
  8. LEVASTATIN [Concomitant]
  9. PLAQUENIL [Concomitant]
     Active Substance: HYDROXYCHLOROQUINE SULFATE
  10. VITAMIN D [Concomitant]
     Active Substance: CHOLECALCIFEROL
  11. FOLIC ACID. [Concomitant]
     Active Substance: FOLIC ACID
  12. GLUCOPHAGE [Concomitant]
     Active Substance: METFORMIN HYDROCHLORIDE
  13. TEMAZEPAM. [Concomitant]
     Active Substance: TEMAZEPAM
  14. LASIX [Concomitant]
     Active Substance: FUROSEMIDE
  15. SYNTHROID [Concomitant]
     Active Substance: LEVOTHYROXINE SODIUM
  16. DIAZEPAM. [Concomitant]
     Active Substance: DIAZEPAM
  17. PHENERGAN [Concomitant]
     Active Substance: PROMETHAZINE HYDROCHLORIDE
  18. ROBAXIN [Concomitant]
     Active Substance: METHOCARBAMOL
  19. ASPIRIN. [Concomitant]
     Active Substance: ASPIRIN
  20. CALCIUM [Concomitant]
     Active Substance: CALCIUM
  21. CARBAMAZEPINE. [Concomitant]
     Active Substance: CARBAMAZEPINE
  22. EVENING PRIMROSE [Concomitant]
  23. FUROSEMIDE. [Concomitant]
     Active Substance: FUROSEMIDE
  24. GUAIFENOS [Concomitant]
  25. HYDROCODONE ACETAMINOPHEN [Concomitant]
     Active Substance: ACETAMINOPHEN\HYDROCODONE BITARTRATE
  26. K-DUR [Concomitant]
     Active Substance: POTASSIUM CHLORIDE
  27. TOPAMAX [Concomitant]
     Active Substance: TOPIRAMATE
  28. TRAMADOL [Concomitant]
     Active Substance: TRAMADOL
  29. CRESTOR [Concomitant]
     Active Substance: ROSUVASTATIN CALCIUM
  30. GELNIQ [Concomitant]
  31. NEXIUM [Concomitant]
     Active Substance: ESOMEPRAZOLE MAGNESIUM
  32. CYMBALTA [Concomitant]
     Active Substance: DULOXETINE HYDROCHLORIDE
  33. DIOVAN [Concomitant]
     Active Substance: VALSARTAN
  34. FISH OIL [Concomitant]
     Active Substance: FISH OIL
  35. MVI [Concomitant]
     Active Substance: VITAMINS
  36. PERI COLACE [Concomitant]

REACTIONS (6)
  - Mitral valve prolapse [None]
  - Heart rate increased [None]
  - Atrial fibrillation [None]
  - Incorrect dose administered [None]
  - Dyspnoea [None]
  - Tricuspid valve incompetence [None]

NARRATIVE: CASE EVENT DATE: 20140702
